FAERS Safety Report 5608267-9 (Version None)
Quarter: 2008Q1

REPORT INFORMATION
  Report Type: 
  Country: None (occurrence: None)
  Receive Date: 20080130
  Receipt Date: 20080122
  Transmission Date: 20080703
  Serious: Yes (Hospitalization, Other)
  Sender: FDA-Public Use
  Company Number: JP-ELI_LILLY_AND_COMPANY-JP200711005431

PATIENT
  Sex: Male
  Weight: 55.8 kg

DRUGS (14)
  1. PEMETREXED [Suspect]
     Indication: PLEURAL MESOTHELIOMA MALIGNANT
     Dosage: 500 MG/M2, OTHER
     Route: 042
     Dates: start: 20070403, end: 20070403
  2. PEMETREXED [Suspect]
     Dosage: 730 MG, OTHER
     Route: 042
     Dates: start: 20070502, end: 20070502
  3. CISPLATIN [Suspect]
     Indication: PLEURAL MESOTHELIOMA MALIGNANT
     Dosage: 75 MG/M2, OTHER
     Route: 042
     Dates: start: 20070403, end: 20070502
  4. CISPLATIN [Suspect]
     Dosage: 85 MG, OTHER
     Route: 042
     Dates: start: 20070502, end: 20070502
  5. PANVITAN [Concomitant]
     Indication: PROPHYLAXIS
     Dosage: 0.5 MG/KG, DAILY (1/D)
     Route: 048
     Dates: start: 20070326, end: 20070531
  6. MASBLON H [Concomitant]
     Indication: PROPHYLAXIS
     Dosage: 1 MG, OTHER
     Route: 030
     Dates: start: 20070326, end: 20070524
  7. NORVASC [Concomitant]
     Indication: HYPERTENSION
     Dosage: 5 MG, UNK
  8. FRANDOL [Concomitant]
     Indication: ANGINA PECTORIS
     Dosage: 40 MG, UNKNOWN
     Route: 062
  9. KYTRIL [Concomitant]
     Indication: PROPHYLAXIS
     Dosage: 6 MG, DAILY (1/D)
     Dates: start: 20070403, end: 20070404
  10. KYTRIL [Concomitant]
     Dosage: 3 MG, OTHER
     Route: 042
     Dates: start: 20070502, end: 20070502
  11. DECADRON [Concomitant]
     Indication: PROPHYLAXIS
     Dosage: 8 MG, OTHER
     Route: 042
     Dates: start: 20070403, end: 20070404
  12. DECADRON [Concomitant]
     Dosage: 8 MG, OTHER
     Route: 042
     Dates: start: 20070502, end: 20070502
  13. ZANTAC [Concomitant]
     Indication: PROPHYLAXIS
     Dosage: 50 MG, DAILY (1/D)
     Route: 042
     Dates: start: 20070403, end: 20070404
  14. FOSMICIN S [Concomitant]
     Indication: PROPHYLAXIS
     Dosage: 4 G, DAILY (1/D)
     Route: 042
     Dates: start: 20070403, end: 20070404

REACTIONS (7)
  - ANAEMIA [None]
  - DIARRHOEA [None]
  - NEUTROPHIL COUNT DECREASED [None]
  - PLATELET COUNT DECREASED [None]
  - RENAL FUNCTION TEST ABNORMAL [None]
  - SHOCK [None]
  - WHITE BLOOD CELL COUNT DECREASED [None]
